FAERS Safety Report 16059518 (Version 2)
Quarter: 2019Q2

REPORT INFORMATION
  Report Type: Report from Study
  Country: DE (occurrence: DE)
  Receive Date: 20190311
  Receipt Date: 20190503
  Transmission Date: 20190711
  Serious: Yes (Hospitalization)
  Sender: FDA-Public Use
  Company Number: DE-ACTELION-A-NJ2019-187433

PATIENT
  Age: 81 Year
  Sex: Female

DRUGS (2)
  1. VENTAVIS [Suspect]
     Active Substance: ILOPROST
     Indication: PULMONARY ARTERIAL HYPERTENSION
     Dosage: 10 MCG/ML
     Route: 055
     Dates: start: 20190222, end: 20190226
  2. VENTAVIS [Suspect]
     Active Substance: ILOPROST
     Dosage: 10 MCG/ML
     Route: 055
     Dates: start: 20190327, end: 20190409

REACTIONS (3)
  - Blood pressure fluctuation [Recovered/Resolved]
  - Blood pressure decreased [Recovering/Resolving]
  - Photopsia [Recovering/Resolving]

NARRATIVE: CASE EVENT DATE: 20190225
